FAERS Safety Report 14626831 (Version 5)
Quarter: 2019Q1

REPORT INFORMATION
  Report Type: Spontaneous
  Country: JP (occurrence: JP)
  Receive Date: 20180312
  Receipt Date: 20190117
  Transmission Date: 20190417
  Serious: Yes (Death, Hospitalization, Other)
  Sender: FDA-Public Use
  Company Number: JP-PFIZER INC-2018083932

PATIENT
  Age: 67 Year
  Sex: Female

DRUGS (6)
  1. CODEINE PHOSPHATE [Concomitant]
     Active Substance: CODEINE PHOSPHATE
     Dosage: 20 MG, 4X/DAY
     Route: 048
     Dates: start: 20160510, end: 20180529
  2. VITAMEDIN S [Concomitant]
     Dosage: 1 DF, 3X/DAY
     Route: 048
     Dates: start: 20160510, end: 20180529
  3. IBRANCE [Suspect]
     Active Substance: PALBOCICLIB
     Indication: METASTASES TO LUNG
     Dosage: 100 MG, CYCLIC (ONCE DAILY, AS LATER LINE TREATMENT)
     Dates: start: 20180226, end: 20180303
  4. LYRICA [Concomitant]
     Active Substance: PREGABALIN
     Dosage: 75 MG, 2X/DAY
     Route: 048
     Dates: start: 20160510, end: 20180529
  5. MAGMITT [Concomitant]
     Active Substance: MAGNESIUM OXIDE
     Dosage: 330 MG, 3X/DAY
     Route: 048
     Dates: start: 20160510, end: 20180529
  6. NEUQUINON [Concomitant]
     Active Substance: UBIDECARENONE
     Dosage: 10 MG, 3X/DAY
     Route: 048
     Dates: start: 20160510, end: 20180529

REACTIONS (11)
  - Dyspnoea [Recovering/Resolving]
  - Surfactant protein increased [Unknown]
  - Neoplasm progression [Fatal]
  - C-reactive protein increased [Unknown]
  - Platelet count increased [Recovered/Resolved]
  - Oxygen saturation decreased [Unknown]
  - Cell marker increased [Unknown]
  - Eosinophil count decreased [Unknown]
  - Monocyte count abnormal [Recovered/Resolved]
  - Interstitial lung disease [Recovered/Resolved]
  - Pneumocystis jirovecii pneumonia [Unknown]

NARRATIVE: CASE EVENT DATE: 20180226
